FAERS Safety Report 15561992 (Version 4)
Quarter: 2020Q3

REPORT INFORMATION
  Report Type: Spontaneous
  Country: US (occurrence: US)
  Receive Date: 20181029
  Receipt Date: 20200721
  Transmission Date: 20201102
  Serious: Yes (Other)
  Sender: FDA-Public Use
  Company Number: US-SA-2018SA297051

PATIENT

DRUGS (3)
  1. LANTUS [Suspect]
     Active Substance: INSULIN GLARGINE
     Dosage: 52 IU, QD
     Route: 065
  2. LANTUS [Suspect]
     Active Substance: INSULIN GLARGINE
     Indication: TYPE 2 DIABETES MELLITUS
     Dosage: 52 AM/49 PM, QD
     Route: 065
  3. LANTUS [Suspect]
     Active Substance: INSULIN GLARGINE
     Dosage: 52 UNITS AM + 49 UNITS PM
     Route: 065

REACTIONS (6)
  - Cataract [Unknown]
  - Retinal artery occlusion [Unknown]
  - Injection site scar [Unknown]
  - Device operational issue [Unknown]
  - Inappropriate schedule of product administration [Unknown]
  - Blindness unilateral [Unknown]

NARRATIVE: CASE EVENT DATE: 202006
